FAERS Safety Report 7076471-1 (Version None)
Quarter: 2010Q4

REPORT INFORMATION
  Report Type: 
  Country: None (occurrence: None)
  Receive Date: 20101101
  Receipt Date: 20101027
  Transmission Date: 20110411
  Serious: Yes (Other)
  Sender: FDA-Public Use
  Company Number: GB-BRISTOL-MYERS SQUIBB COMPANY-15349251

PATIENT
  Age: 68 Year
  Sex: Female

DRUGS (1)
  1. TRIAMCINOLONE ACETONIDE [Suspect]
     Indication: TENOSYNOVITIS STENOSANS
     Dosage: 10MG/ML

REACTIONS (1)
  - COMPLEX REGIONAL PAIN SYNDROME [None]
